FAERS Safety Report 5015499-X (Version None)
Quarter: 2006Q2

REPORT INFORMATION
  Report Type: 
  Country: None (occurrence: None)
  Receive Date: 20060601
  Receipt Date: 20060307
  Transmission Date: 20061013
  Serious: Yes (Hospitalization)
  Sender: FDA-Public Use
  Company Number: HQWYE218608MAR06

PATIENT
  Sex: Male

DRUGS (8)
  1. ENBREL [Suspect]
     Indication: RHEUMATOID ARTHRITIS
     Route: 058
     Dates: start: 20060126, end: 20060216
  2. PREDNISOLONE [Suspect]
     Indication: RHEUMATOID ARTHRITIS
     Route: 048
     Dates: start: 20050101
  3. ISCOTIN [Concomitant]
     Route: 065
     Dates: start: 20060209
  4. ADALAT [Concomitant]
     Route: 065
     Dates: start: 20050101
  5. LOXONIN [Concomitant]
     Route: 065
     Dates: start: 20050101
  6. CYTOTEC [Concomitant]
     Route: 065
     Dates: start: 20050101
  7. VANCOMYCIN [Concomitant]
     Route: 065
     Dates: start: 20051228, end: 20060205
  8. MEROPENEM [Concomitant]
     Route: 065
     Dates: start: 20051231, end: 20060131

REACTIONS (5)
  - COMPUTERISED TOMOGRAM ABNORMAL [None]
  - INTERSTITIAL LUNG DISEASE [None]
  - PLEURAL EFFUSION [None]
  - PNEUMOCYSTIS JIROVECI PNEUMONIA [None]
  - PYREXIA [None]
